FAERS Safety Report 13667094 (Version 2)
Quarter: 2017Q2

REPORT INFORMATION
  Report Type: Report from Study
  Country: US (occurrence: US)
  Receive Date: 20170619
  Receipt Date: 20170621
  Transmission Date: 20170830
  Serious: Yes (Death)
  Sender: FDA-Public Use
  Company Number: US-VIFOR (INTERNATIONAL) INC.-VIT-2017-06685

PATIENT
  Age: 67 Year
  Sex: Female

DRUGS (16)
  1. VITAMIN B12 [Concomitant]
     Active Substance: CYANOCOBALAMIN
  2. NASONEX [Concomitant]
     Active Substance: MOMETASONE FUROATE
  3. SODIUM BICARBONATE. [Concomitant]
     Active Substance: SODIUM BICARBONATE
  4. TRAMADOL. [Concomitant]
     Active Substance: TRAMADOL
  5. LIDOCAINE. [Concomitant]
     Active Substance: LIDOCAINE
  6. ZOCOR [Concomitant]
     Active Substance: SIMVASTATIN
  7. IRON [Concomitant]
     Active Substance: IRON
  8. VITAMIN D [Concomitant]
     Active Substance: CHOLECALCIFEROL
  9. TORSEMIDE. [Concomitant]
     Active Substance: TORSEMIDE
  10. K-DUR [Concomitant]
     Active Substance: POTASSIUM CHLORIDE
  11. WARFARIN [Concomitant]
     Active Substance: WARFARIN
  12. VELTASSA [Suspect]
     Active Substance: PATIROMER
     Indication: HYPERKALAEMIA
     Route: 048
     Dates: start: 20170131, end: 20170609
  13. ALBUTEROL. [Concomitant]
     Active Substance: ALBUTEROL
  14. FENTANYL. [Concomitant]
     Active Substance: FENTANYL
  15. TRAVATAN Z [Concomitant]
     Active Substance: TRAVOPROST
  16. AMIODARONE [Concomitant]
     Active Substance: AMIODARONE

REACTIONS (1)
  - Death [Fatal]

NARRATIVE: CASE EVENT DATE: 20170609
